FAERS Safety Report 8229788-9 (Version None)
Quarter: 2012Q1

REPORT INFORMATION
  Report Type: 
  Country: None (occurrence: None)
  Receive Date: 20120322
  Receipt Date: 20120316
  Transmission Date: 20120608
  Serious: Yes (Hospitalization)
  Sender: FDA-Public Use
  Company Number: PHHO2011NL13703

PATIENT
  Sex: Male
  Weight: 91.2 kg

DRUGS (6)
  1. TACROLIMUS [Suspect]
     Indication: RENAL TRANSPLANT
     Dosage: 2 MG, BID
     Dates: start: 20110426, end: 20110727
  2. CERTICAN [Suspect]
     Indication: RENAL TRANSPLANT
     Dosage: NO TREATMENT
     Dates: start: 20110727
  3. ESOMEPRAZOLE SODIUM [Suspect]
  4. CERTICAN [Suspect]
     Dosage: 2.5 MG, BID
     Route: 048
     Dates: start: 20110729, end: 20110826
  5. COTRIM [Suspect]
  6. TACROLIMUS [Suspect]
     Dosage: UNK

REACTIONS (2)
  - KIDNEY TRANSPLANT REJECTION [None]
  - TRANSPLANT FAILURE [None]
